FAERS Safety Report 7997403-5 (Version None)
Quarter: 2011Q4

REPORT INFORMATION
  Report Type: 
  Country: None (occurrence: None)
  Receive Date: 20111221
  Receipt Date: 20111210
  Transmission Date: 20120403
  Serious: Yes (Other)
  Sender: FDA-Public Use
  Company Number: US-JNJFOC-20111207104

PATIENT
  Age: 32 Year
  Sex: Male

DRUGS (21)
  1. CYCLOPHOSPHAMIDE [Suspect]
     Indication: BURKITT'S LYMPHOMA STAGE I
     Route: 065
     Dates: end: 20101112
  2. RITUXIMAB [Suspect]
     Route: 042
     Dates: start: 20100903
  3. CYCLOPHOSPHAMIDE [Suspect]
     Route: 065
     Dates: start: 20100903
  4. LEUCOVORIN CALCIUM [Suspect]
     Indication: BURKITT'S LYMPHOMA STAGE I
     Route: 065
     Dates: start: 20100903
  5. FILGRASTIM [Suspect]
     Route: 065
     Dates: start: 20100903
  6. DOXORUBICIN HCL [Suspect]
     Indication: BURKITT'S LYMPHOMA STAGE I
     Route: 042
     Dates: end: 20101112
  7. CYCLOPHOSPHAMIDE [Suspect]
     Route: 065
  8. DOXORUBICIN HCL [Suspect]
     Route: 042
  9. DOXORUBICIN HCL [Suspect]
     Route: 042
     Dates: start: 20100903
  10. VINCRISTINE [Suspect]
     Route: 065
     Dates: start: 20100903
  11. VINCRISTINE [Suspect]
     Route: 065
  12. FILGRASTIM [Suspect]
     Indication: BURKITT'S LYMPHOMA STAGE I
     Route: 065
  13. FILGRASTIM [Suspect]
     Route: 065
     Dates: end: 20101112
  14. VINCRISTINE [Suspect]
     Indication: BURKITT'S LYMPHOMA STAGE I
     Route: 065
     Dates: end: 20101112
  15. RITUXIMAB [Suspect]
     Indication: BURKITT'S LYMPHOMA STAGE I
     Route: 042
  16. METHOTREXATE [Suspect]
     Route: 042
     Dates: end: 20101112
  17. RITUXIMAB [Suspect]
     Route: 042
     Dates: end: 20101112
  18. LEUCOVORIN CALCIUM [Suspect]
     Route: 065
     Dates: end: 20101112
  19. LEUCOVORIN CALCIUM [Suspect]
     Route: 065
  20. METHOTREXATE [Suspect]
     Indication: BURKITT'S LYMPHOMA STAGE I
     Route: 042
  21. METHOTREXATE [Suspect]
     Route: 042
     Dates: start: 20100903

REACTIONS (8)
  - LEUKOPENIA [None]
  - LYMPHOPENIA [None]
  - NEUTROPENIA [None]
  - BLOOD SODIUM ABNORMAL [None]
  - BLOOD GLUCOSE ABNORMAL [None]
  - TRANSAMINASES ABNORMAL [None]
  - STOMATITIS [None]
  - PYREXIA [None]
